FAERS Safety Report 4514132-0 (Version None)
Quarter: 2004Q4

REPORT INFORMATION
  Report Type: 
  Country: None (occurrence: None)
  Receive Date: 20041124
  Receipt Date: 20041109
  Transmission Date: 20050328
  Serious: Yes (Hospitalization)
  Sender: FDA-Public Use
  Company Number: 2004S1000204

PATIENT
  Age: 75 Year
  Sex: Female

DRUGS (2)
  1. ACITRETIN (ACITRETIN) (25 MG) [Suspect]
     Indication: PSORIASIS
     Dosage: 25 MG; DAILY; PO
     Route: 048
     Dates: start: 20030815, end: 20031218
  2. CLARITHROMYCIN [Concomitant]

REACTIONS (14)
  - ACUTE GENERALISED EXANTHEMATOUS PUSTULOSIS [None]
  - CAPILLARY LEAK SYNDROME [None]
  - DYSPNOEA [None]
  - HEPATIC FUNCTION ABNORMAL [None]
  - HYPOTENSION [None]
  - LEUKOCYTOSIS [None]
  - LUNG INFILTRATION [None]
  - OEDEMA PERIPHERAL [None]
  - OXYGEN SATURATION DECREASED [None]
  - PULMONARY OEDEMA [None]
  - RASH SCALY [None]
  - RENAL IMPAIRMENT [None]
  - SKIN OEDEMA [None]
  - URINARY RETENTION [None]
